FAERS Safety Report 15898734 (Version 3)
Quarter: 2019Q1

REPORT INFORMATION
  Report Type: Spontaneous
  Country: CH (occurrence: CH)
  Receive Date: 20190201
  Receipt Date: 20190205
  Transmission Date: 20190417
  Serious: Yes (Other)
  Sender: FDA-Public Use
  Company Number: CH-ROCHE-2254550

PATIENT
  Sex: Female

DRUGS (4)
  1. ACTEMRA [Suspect]
     Active Substance: TOCILIZUMAB
     Indication: RHEUMATOID ARTHRITIS
     Route: 065
     Dates: start: 201712
  2. SIMVASTATIN. [Concomitant]
     Active Substance: SIMVASTATIN
     Route: 065
  3. SPIRICORT [Concomitant]
     Active Substance: PREDNISOLONE
     Route: 065
  4. NOVALGIN (SWITZERLAND) [Concomitant]
     Active Substance: DIPYRONE

REACTIONS (2)
  - Vasospasm [Unknown]
  - Subarachnoid haemorrhage [Unknown]
